FAERS Safety Report 19850280 (Version 2)
Quarter: 2021Q4

REPORT INFORMATION
  Report Type: Spontaneous
  Country: JP (occurrence: JP)
  Receive Date: 20210917
  Receipt Date: 20211004
  Transmission Date: 20220303
  Serious: Yes (Other)
  Sender: FDA-Public Use
  Company Number: JP-ONO-2021JP022696

PATIENT
  Age: 8 Decade
  Sex: Male

DRUGS (1)
  1. SITAGLIPTIN [Suspect]
     Active Substance: SITAGLIPTIN
     Indication: Type 2 diabetes mellitus
     Dosage: 50 MILLIGRAM, QD (EVERYDAY)
     Route: 048
     Dates: start: 202007

REACTIONS (3)
  - Diabetes mellitus [Unknown]
  - Urine abnormality [Unknown]
  - Treatment noncompliance [Unknown]
